FAERS Safety Report 8535185-9 (Version None)
Quarter: 2012Q3

REPORT INFORMATION
  Report Type: 
  Country: None (occurrence: None)
  Receive Date: 20120724
  Receipt Date: 20120718
  Transmission Date: 20120928
  Serious: Yes (Other)
  Sender: FDA-Public Use
  Company Number: US-RB-042537-12

PATIENT
  Age: 54 Year
  Sex: Female

DRUGS (2)
  1. BUPRENORPHINE [Suspect]
     Indication: DRUG DEPENDENCE
     Dosage: TABLET DOSAGE UNKNOWN. DOSE TAPERED TO 4MG DAILY
     Route: 060
     Dates: start: 20120601
  2. SUBOXONE [Suspect]
     Indication: DRUG DEPENDENCE
     Route: 060
     Dates: start: 20120529, end: 20120601

REACTIONS (6)
  - OEDEMA PERIPHERAL [None]
  - WEIGHT DECREASED [None]
  - BLISTER [None]
  - PSYCHOTIC DISORDER [None]
  - HEADACHE [None]
  - RASH [None]
